FAERS Safety Report 5218023-1 (Version None)
Quarter: 2007Q1

REPORT INFORMATION
  Report Type: 
  Country: None (occurrence: None)
  Receive Date: 20061130
  Receipt Date: 20060907
  Transmission Date: 20070707
  Serious: Yes (Other)
  Sender: FDA-Public Use
  Company Number: US200609002423

PATIENT
  Age: 57 Year
  Sex: Female

DRUGS (6)
  1. ZYPREXA [Suspect]
     Indication: SCHIZOPHRENIA
     Dosage: 30 MG DAILY (1/D), 20 MG
     Dates: start: 20021014, end: 20060825
  2. ZYPREXA [Suspect]
     Indication: SCHIZOPHRENIA
     Dosage: 30 MG DAILY (1/D), 20 MG
     Dates: start: 20060825
  3. METHADONE HCL [Concomitant]
  4. CLONIDINE [Concomitant]
  5. CELEXA [Concomitant]
  6. SEROQUEL [Concomitant]

REACTIONS (2)
  - HYPERTENSION [None]
  - PRESCRIBED OVERDOSE [None]
